FAERS Safety Report 13806322 (Version 1)
Quarter: 2017Q3

REPORT INFORMATION
  Report Type: Spontaneous
  Country: US (occurrence: US)
  Receive Date: 20170728
  Receipt Date: 20170728
  Transmission Date: 20171127
  Serious: Yes (Hospitalization, Other)
  Sender: FDA-Public Use
  Company Number: US-GLAXOSMITHKLINE-US2017115685

PATIENT
  Age: 51 Year
  Sex: Female

DRUGS (17)
  1. HYDROCODONE [Concomitant]
     Active Substance: HYDROCODONE
  2. OXYGEN. [Concomitant]
     Active Substance: OXYGEN
  3. PROMETHAZINE [Concomitant]
     Active Substance: PROMETHAZINE\PROMETHAZINE HYDROCHLORIDE
  4. CIPRO [Suspect]
     Active Substance: CIPROFLOXACIN HYDROCHLORIDE
     Indication: CHRONIC OBSTRUCTIVE PULMONARY DISEASE
     Dosage: UNK
     Route: 048
     Dates: start: 201605
  5. VITAMIN D3 [Concomitant]
     Active Substance: CHOLECALCIFEROL
  6. ACIPHEX [Concomitant]
     Active Substance: RABEPRAZOLE SODIUM
  7. COPAXONE [Concomitant]
     Active Substance: GLATIRAMER ACETATE
  8. CETIRIZINE [Concomitant]
     Active Substance: CETIRIZINE HYDROCHLORIDE
  9. FLAXSEED [Concomitant]
     Active Substance: FLAX SEED
  10. CIPRO [Suspect]
     Active Substance: CIPROFLOXACIN HYDROCHLORIDE
     Indication: EAR INFECTION
  11. KETOROLAC [Concomitant]
     Active Substance: KETOROLAC\KETOROLAC TROMETHAMINE
  12. ANORO ELLIPTA [Suspect]
     Active Substance: UMECLIDINIUM BROMIDE\VILANTEROL TRIFENATATE
     Indication: CHRONIC OBSTRUCTIVE PULMONARY DISEASE
     Dosage: 1 PUFF(S), QD
     Route: 055
     Dates: start: 201603
  13. CLONAZEPAM. [Concomitant]
     Active Substance: CLONAZEPAM
  14. OXYBUTYNIN [Concomitant]
     Active Substance: OXYBUTYNIN
  15. FAMOTIDINE. [Concomitant]
     Active Substance: FAMOTIDINE
  16. MONTELUKAST [Concomitant]
     Active Substance: MONTELUKAST SODIUM
  17. TEMAZEPAM. [Concomitant]
     Active Substance: TEMAZEPAM

REACTIONS (8)
  - Labelled drug-drug interaction medication error [Unknown]
  - Heart rate increased [Recovered/Resolved]
  - Pulse abnormal [Recovered/Resolved]
  - Electrocardiogram QT interval abnormal [Recovered/Resolved]
  - Ear infection [Recovered/Resolved]
  - Arrhythmia [Recovered/Resolved]
  - Cystitis [Recovered/Resolved]
  - Ear haemorrhage [Recovered/Resolved]

NARRATIVE: CASE EVENT DATE: 201604
